FAERS Safety Report 25882332 (Version 1)
Quarter: 2025Q4

REPORT INFORMATION
  Report Type: Spontaneous
  Country: EU (occurrence: EU)
  Receive Date: 20251006
  Receipt Date: 20251006
  Transmission Date: 20260117
  Serious: Yes (Disabling, Other)
  Sender: TEVA
  Company Number: None

PATIENT
  Age: 42 Year
  Sex: Female
  Weight: 65 kg

DRUGS (2)
  1. OFLOXACIN [Suspect]
     Active Substance: OFLOXACIN
     Indication: Urinary tract infection
     Dosage: 2 SEPARATED DOSES DAILY DOSE: 4 DF DOSAGE FORM EVERY DAY
     Route: 048
     Dates: start: 20090701, end: 20090703
  2. YASMIN [Concomitant]
     Active Substance: DROSPIRENONE\ETHINYL ESTRADIOL
     Indication: Contraception
     Route: 048
     Dates: start: 2007, end: 2013

REACTIONS (13)
  - Aphasia [Not Recovered/Not Resolved]
  - Chest pain [Recovering/Resolving]
  - Photophobia [Recovering/Resolving]
  - Angina pectoris [Recovering/Resolving]
  - Parosmia [Not Recovered/Not Resolved]
  - Palpitations [Recovering/Resolving]
  - Food intolerance [Recovered/Resolved with Sequelae]
  - Dyspnoea [Not Recovered/Not Resolved]
  - Arthritis [Not Recovered/Not Resolved]
  - Tendonitis [Recovered/Resolved with Sequelae]
  - Inflammation [Not Recovered/Not Resolved]
  - Tendon injury [Not Recovered/Not Resolved]
  - Tendon disorder [Recovered/Resolved with Sequelae]

NARRATIVE: CASE EVENT DATE: 20090701
